FAERS Safety Report 19980737 (Version 4)
Quarter: 2021Q4

REPORT INFORMATION
  Report Type: Report from Study
  Country: US (occurrence: US)
  Receive Date: 20211021
  Receipt Date: 20211228
  Transmission Date: 20220303
  Serious: No
  Sender: FDA-Public Use
  Company Number: US-BIOVITRUM-2021US8880

PATIENT
  Sex: Female

DRUGS (2)
  1. KINERET [Suspect]
     Active Substance: ANAKINRA
     Indication: Rheumatoid arthritis
     Route: 058
     Dates: start: 202109
  2. KINERET [Suspect]
     Active Substance: ANAKINRA
     Route: 058
     Dates: start: 20211001

REACTIONS (8)
  - Parosmia [Unknown]
  - Injection site discomfort [Unknown]
  - Injection site pruritus [Unknown]
  - Injection site urticaria [Unknown]
  - Injection site erythema [Unknown]
  - Needle issue [Unknown]
  - Product quality issue [Unknown]
  - Drug ineffective [Unknown]
